FAERS Safety Report 8290691-X (Version None)
Quarter: 2012Q2

REPORT INFORMATION
  Report Type: 
  Country: None (occurrence: None)
  Receive Date: 20120417
  Receipt Date: 20111011
  Transmission Date: 20120825
  Serious: No
  Sender: FDA-Public Use
  Company Number: US-ASTRAZENECA-2010SE22532

PATIENT
  Sex: Female
  Weight: 99.3 kg

DRUGS (2)
  1. NEXIUM [Suspect]
     Indication: GASTROOESOPHAGEAL REFLUX DISEASE
     Route: 048
  2. LISINOPRIL [Suspect]
     Route: 048

REACTIONS (17)
  - STRESS [None]
  - WEIGHT INCREASED [None]
  - HAEMORRHOIDS [None]
  - HYPERTRIGLYCERIDAEMIA [None]
  - ABDOMINAL PAIN UPPER [None]
  - DRUG DOSE OMISSION [None]
  - HYPERTENSION [None]
  - LOW DENSITY LIPOPROTEIN INCREASED [None]
  - DEPRESSION [None]
  - CONSTIPATION [None]
  - INSOMNIA [None]
  - HEADACHE [None]
  - TYPE 2 DIABETES MELLITUS [None]
  - HYPOTHYROIDISM [None]
  - APHAGIA [None]
  - HAEMORRHOIDAL HAEMORRHAGE [None]
  - BACK PAIN [None]
